FAERS Safety Report 5467870-X (Version None)
Quarter: 2007Q3

REPORT INFORMATION
  Report Type: 
  Country: None (occurrence: None)
  Receive Date: 20070921
  Receipt Date: 20060614
  Transmission Date: 20080115
  Serious: Yes (Other)
  Sender: FDA-Public Use
  Company Number: 530#5#2006-00028

PATIENT
  Age: 66 Year
  Sex: Male

DRUGS (2)
  1. ALPROSTADIL [Suspect]
     Indication: PERIPHERAL ISCHAEMIA
     Dosage: 2 X 40 UG PER DAY
     Route: 041
     Dates: start: 20040719, end: 20040720
  2. GLIBANCLAMIDE             (GLIBENCLAMIDE) [Concomitant]

REACTIONS (1)
  - GASTROINTESTINAL HAEMORRHAGE [None]
